FAERS Safety Report 17965582 (Version 2)
Quarter: 2020Q3

REPORT INFORMATION
  Report Type: Spontaneous
  Country: CN (occurrence: CN)
  Receive Date: 20200630
  Receipt Date: 20200709
  Transmission Date: 20201103
  Serious: Yes (Other)
  Sender: FDA-Public Use
  Company Number: CN-009507513-2006CHN009294

PATIENT
  Age: 60 Year
  Sex: Male

DRUGS (3)
  1. HARNAL [Suspect]
     Active Substance: TAMSULOSIN HYDROCHLORIDE
     Dosage: 1 CAPSULE (0.2 MILLIGRAM), EVERY DAY
     Route: 048
  2. BAO LIE ZHI [Concomitant]
     Dosage: UNK
  3. PROSCAR [Suspect]
     Active Substance: FINASTERIDE
     Dosage: 1 CAPSULE (5 MILLIGRAM), EVERY DAY
     Route: 048

REACTIONS (7)
  - Therapeutic product effect incomplete [Unknown]
  - Prostatitis [Unknown]
  - Nephrolithiasis [Unknown]
  - Cystitis [Unknown]
  - Urinary retention [Unknown]
  - Hydrocalyx [Unknown]
  - Bladder obstruction [Unknown]
